FAERS Safety Report 5625463-5 (Version None)
Quarter: 2008Q1

REPORT INFORMATION
  Report Type: 
  Country: None (occurrence: None)
  Receive Date: 20080208
  Receipt Date: 20080202
  Transmission Date: 20080703
  Serious: Yes (Other)
  Sender: FDA-Public Use
  Company Number: CHPA2008US02095

PATIENT
  Age: 68 Year
  Sex: Male

DRUGS (2)
  1. NICOTINE [Suspect]
     Dosage: 21 MG, TRANSDERMAL; 14MG, TRANSDERMAL
     Route: 062
     Dates: start: 20071229
  2. NICOTINE [Suspect]
     Dosage: 21 MG, TRANSDERMAL; 14MG, TRANSDERMAL
     Route: 062
     Dates: start: 20080201

REACTIONS (1)
  - BLOOD GLUCOSE INCREASED [None]
